FAERS Safety Report 12746607 (Version 2)
Quarter: 2016Q4

REPORT INFORMATION
  Report Type: Spontaneous
  Country: US (occurrence: US)
  Receive Date: 20160915
  Receipt Date: 20161010
  Transmission Date: 20170207
  Serious: Yes (Hospitalization, Other)
  Sender: FDA-Public Use
  Company Number: US-009507513-0908USA01043

PATIENT
  Sex: Female

DRUGS (3)
  1. FOSAMAX [Suspect]
     Active Substance: ALENDRONATE SODIUM
     Dosage: 70 MG, QW
     Route: 048
     Dates: start: 20080506
  2. FOSAMAX [Suspect]
     Active Substance: ALENDRONATE SODIUM
     Dosage: UNK
     Route: 048
  3. PULMICORT TURBUHALER [Concomitant]
     Active Substance: BUDESONIDE

REACTIONS (9)
  - Pancreatitis [Unknown]
  - Drug hypersensitivity [Unknown]
  - Coma [Recovered/Resolved]
  - Candida infection [Unknown]
  - Staphylococcal infection [Unknown]
  - Respiratory distress [Unknown]
  - Dysphonia [Unknown]
  - Clostridium difficile infection [Unknown]
  - Malaise [Unknown]

NARRATIVE: CASE EVENT DATE: 2008
